FAERS Safety Report 20161073 (Version 3)
Quarter: 2021Q4

REPORT INFORMATION
  Report Type: Spontaneous
  Country: US (occurrence: US)
  Receive Date: 20211208
  Receipt Date: 20211225
  Transmission Date: 20220303
  Serious: No
  Sender: FDA-Public Use
  Company Number: US-SANOFI-00881767

PATIENT
  Age: 83 Year
  Sex: Female

DRUGS (2)
  1. ALLEGRA [Suspect]
     Active Substance: FEXOFENADINE HYDROCHLORIDE
     Indication: Rhinorrhoea
     Dosage: DRUG STRUCTURE DOSAGE : ONE TABLET (60 MG) DRUG INTERVAL DOSAGE : EVERY 12 HOURS
  2. ALLEGRA [Suspect]
     Active Substance: FEXOFENADINE HYDROCHLORIDE
     Indication: Pyrexia

REACTIONS (1)
  - Drug ineffective [Unknown]
